FAERS Safety Report 9067345 (Version 2)
Quarter: 2013Q1

REPORT INFORMATION
  Report Type: Spontaneous
  Country: MX (occurrence: MX)
  Receive Date: 20130214
  Receipt Date: 20130215
  Transmission Date: 20140127
  Serious: Yes (Death, Other)
  Sender: FDA-Public Use
  Company Number: PHHY2013MX010935

PATIENT
  Age: 62 Year
  Sex: Female

DRUGS (1)
  1. STALEVO [Suspect]
     Indication: PARKINSON^S DISEASE
     Dosage: 3 DF, DAILY (200/150/37.5MG)
     Route: 048
     Dates: start: 201109

REACTIONS (2)
  - Aspiration bronchial [Fatal]
  - Kidney infection [Unknown]
